FAERS Safety Report 16583571 (Version 1)
Quarter: 2019Q3

REPORT INFORMATION
  Report Type: Spontaneous
  Country: US (occurrence: US)
  Receive Date: 20190604
  Receipt Date: 20190604
  Transmission Date: 20191004
  Serious: No
  Sender: FDA-Public Use
  Company Number: None

PATIENT
  Age: 78 Year
  Sex: Female

DRUGS (1)
  1. CAPECITABINE TAB 500MG [Suspect]
     Active Substance: CAPECITABINE
     Dates: start: 201904

REACTIONS (4)
  - Diarrhoea [None]
  - Product dose omission [None]
  - Tremor [None]
  - Abdominal pain upper [None]

NARRATIVE: CASE EVENT DATE: 20190603
